FAERS Safety Report 5335227-8 (Version None)
Quarter: 2007Q2

REPORT INFORMATION
  Report Type: 
  Country: None (occurrence: None)
  Receive Date: 20070525
  Receipt Date: 20070516
  Transmission Date: 20071010
  Serious: Yes (Hospitalization)
  Sender: FDA-Public Use
  Company Number: JP-PFIZER INC-2007037411

PATIENT
  Age: 66 Year
  Sex: Female

DRUGS (5)
  1. EPIRUBICIN HYDROCHLORIDE [Suspect]
     Indication: BREAST CANCER
     Dosage: DAILY DOSE:30MG/M2-FREQ:CYCLIC
     Dates: start: 20010101, end: 20010101
  2. TRASTUZUMAB [Suspect]
     Indication: BREAST CANCER
     Dosage: DAILY DOSE:75MG-FREQ:WEEKLY
  3. CYCLOPHOSPHAMIDE [Concomitant]
     Dates: start: 20010101, end: 20010101
  4. FLUOROURACIL [Concomitant]
     Dates: start: 20010101, end: 20010101
  5. DOCETAXEL [Concomitant]

REACTIONS (1)
  - CARDIAC FAILURE [None]
